FAERS Safety Report 19078644 (Version 1)
Quarter: 2021Q1

REPORT INFORMATION
  Report Type: Spontaneous
  Country: US (occurrence: US)
  Receive Date: 20210331
  Receipt Date: 20210331
  Transmission Date: 20210420
  Serious: Yes (Life-Threatening, Hospitalization, Other)
  Sender: FDA-Public Use
  Company Number: US-DENTSPLY-2021SCDP000082

PATIENT
  Age: 36 Year
  Sex: Female

DRUGS (1)
  1. LIDOCAINE. [Suspect]
     Active Substance: LIDOCAINE
     Indication: LIPOSUCTION
     Dosage: 3 GRAM TOTAL (THIS PATIENT RECEIVED 30MG/KG)
     Route: 058

REACTIONS (8)
  - Cardiotoxicity [None]
  - Incorrect route of product administration [Recovered/Resolved]
  - Toxicity to various agents [None]
  - Electrocardiogram QRS complex shortened [None]
  - Pulse absent [None]
  - Drug level increased [None]
  - Dyspnoea [None]
  - Tremor [None]
